FAERS Safety Report 8522612-6 (Version None)
Quarter: 2012Q3

REPORT INFORMATION
  Report Type: 
  Country: None (occurrence: None)
  Receive Date: 20120719
  Receipt Date: 20120711
  Transmission Date: 20120928
  Serious: Yes (Life-Threatening, Other)
  Sender: FDA-Public Use
  Company Number: GR-UCBSA-061613

PATIENT
  Age: 5 Year
  Sex: Male
  Weight: 19 kg

DRUGS (2)
  1. LEVOCETIRIZINE DIHYDROCHLORIDE [Suspect]
     Indication: RHINITIS
     Route: 048
     Dates: start: 20120626, end: 20120630
  2. DEXA-RHINASPRAY [Concomitant]
     Indication: RHINITIS
     Route: 045
     Dates: start: 20120626, end: 20120630

REACTIONS (2)
  - ARRHYTHMIA SUPRAVENTRICULAR [None]
  - TENSION [None]
